FAERS Safety Report 24565558 (Version 2)
Quarter: 2025Q1

REPORT INFORMATION
  Report Type: Spontaneous
  Country: IL (occurrence: IL)
  Receive Date: 20241030
  Receipt Date: 20250127
  Transmission Date: 20250409
  Serious: Yes (Other)
  Sender: MERCK
  Company Number: IL-009507513-2410ISR011668

PATIENT
  Age: 74 Year
  Sex: Female

DRUGS (3)
  1. BCG LIVE [Suspect]
     Active Substance: BACILLUS CALMETTE-GUERIN SUBSTRAIN TICE LIVE ANTIGEN
     Indication: Bladder cancer
  2. LERCANIDIPINE HYDROCHLORIDE [Concomitant]
     Active Substance: LERCANIDIPINE HYDROCHLORIDE
  3. LIPITOR [Concomitant]
     Active Substance: ATORVASTATIN CALCIUM

REACTIONS (9)
  - Transurethral bladder resection [Unknown]
  - Transurethral bladder resection [Unknown]
  - Follicular cystitis [Unknown]
  - Cystitis noninfective [Unknown]
  - Urinary tract infection [Unknown]
  - Escherichia infection [Unknown]
  - Klebsiella infection [Unknown]
  - Therapy non-responder [Unknown]
  - Incorrect dose administered [Unknown]
